FAERS Safety Report 6793640-6 (Version None)
Quarter: 2010Q2

REPORT INFORMATION
  Report Type: 
  Country: None (occurrence: None)
  Receive Date: 20100624
  Receipt Date: 20090315
  Transmission Date: 20101027
  Serious: No
  Sender: FDA-Public Use
  Company Number: US-PFIZER INC-2008152979

PATIENT
  Sex: Female
  Weight: 78.005 kg

DRUGS (4)
  1. RELPAX [Suspect]
     Indication: MIGRAINE
     Dates: start: 20081101
  2. SYNTHROID [Concomitant]
     Dosage: UNK
  3. TYLENOL [Concomitant]
     Dosage: UNK
  4. IBUPROFEN [Concomitant]
     Dosage: UNK

REACTIONS (1)
  - DRUG INEFFECTIVE [None]
